FAERS Safety Report 8268711-8 (Version None)
Quarter: 2012Q2

REPORT INFORMATION
  Report Type: 
  Country: None (occurrence: None)
  Receive Date: 20120409
  Receipt Date: 20120329
  Transmission Date: 20120825
  Serious: Yes (Death)
  Sender: FDA-Public Use
  Company Number: IT-CELGENEUS-083-21880-12032698

PATIENT
  Sex: Female

DRUGS (2)
  1. REVLIMID [Suspect]
     Indication: MYELOMA RECURRENCE
     Dosage: 10 MILLIGRAM
     Route: 048
     Dates: start: 20110319, end: 20120223
  2. CORTICOSTEROIDS [Concomitant]
     Indication: MYELOMA RECURRENCE
     Route: 065
     Dates: start: 20110329, end: 20120223

REACTIONS (1)
  - MULTIPLE MYELOMA [None]
